FAERS Safety Report 8409606-6 (Version None)
Quarter: 2012Q2

REPORT INFORMATION
  Report Type: 
  Country: None (occurrence: None)
  Receive Date: 20120531
  Receipt Date: 20120531
  Transmission Date: 20120825
  Serious: No
  Sender: FDA-Public Use
  Company Number: None

PATIENT
  Sex: Male
  Weight: 149.687 kg

DRUGS (1)
  1. QUETIAPINE [Suspect]
     Dosage: 600 MG QD PO
     Route: 048
     Dates: start: 20120430, end: 20120502

REACTIONS (3)
  - CONSTIPATION [None]
  - MIGRAINE [None]
  - PRODUCT SUBSTITUTION ISSUE [None]
